FAERS Safety Report 4827591-0 (Version None)
Quarter: 2005Q4

REPORT INFORMATION
  Report Type: 
  Country: None (occurrence: None)
  Receive Date: 20051114
  Receipt Date: 20051031
  Transmission Date: 20060501
  Serious: Yes (Death)
  Sender: FDA-Public Use
  Company Number: JP-NOVOPROD-248237

PATIENT
  Age: 56 Year
  Sex: Male
  Weight: 38 kg

DRUGS (10)
  1. ASPIRIN [Concomitant]
     Dosage: 100 MG, QD
     Route: 048
  2. GASTER D [Concomitant]
     Indication: GASTRIC ULCER
     Dosage: 20 MG, QD
     Route: 048
  3. EURODIN [Concomitant]
     Indication: INSOMNIA
     Dosage: 2 MG, QD
     Route: 048
  4. UBRETID [Concomitant]
     Indication: NEUROGENIC BLADDER
     Dosage: 10 MG
     Route: 048
  5. KALIMATE [Concomitant]
     Indication: HYPERKALAEMIA
     Dosage: 5 G, QD
     Route: 048
  6. LANTUS [Concomitant]
     Indication: INSULIN-REQUIRING TYPE II DIABETES MELLITUS
     Dosage: 31 IU, QD
     Route: 058
     Dates: start: 20040101
  7. FERROUS SULFATE TAB [Concomitant]
     Indication: IRON DEFICIENCY ANAEMIA
     Dosage: 105 MG, QD
     Route: 048
     Dates: start: 20041101
  8. ANTIBIOTICS [Concomitant]
     Indication: BACTERIAL INFECTION
     Dosage: 1 G, QD
     Route: 048
  9. AZULENE SODIUM SULFONATE [Concomitant]
     Indication: GASTRIC ULCER
     Dosage: 1.5 G, QD
     Route: 048
  10. NOVORAPID CHU FLEXPEN [Suspect]
     Indication: INSULIN-REQUIRING TYPE II DIABETES MELLITUS
     Dosage: 91 IU, QD
     Route: 058

REACTIONS (1)
  - DEATH [None]
